FAERS Safety Report 8340352 (Version 4)
Quarter: 2013Q2

REPORT INFORMATION
  Report Type: Spontaneous
  Country: US (occurrence: US)
  Receive Date: 20120117
  Receipt Date: 20130401
  Transmission Date: 20140414
  Serious: Yes (Other)
  Sender: FDA-Public Use
  Company Number: PHEH2012US000800

PATIENT
  Age: 59 Year
  Sex: Female
  Weight: 70.3 kg

DRUGS (5)
  1. GILENYA [Suspect]
     Indication: RELAPSING-REMITTING MULTIPLE SCLEROSIS
     Dosage: 0.5 MG, QD
     Route: 048
     Dates: start: 20110913, end: 20111109
  2. NEURONTIN [Concomitant]
     Indication: NEURALGIA
     Dosage: 300 MG, TID
  3. BACLOFEN [Concomitant]
     Indication: MUSCLE SPASTICITY
     Dosage: 10 MG, BID
  4. EXFORGE [Concomitant]
     Dosage: UNK UKN, UNK
  5. VESICARE [Concomitant]
     Indication: BLADDER DISORDER
     Dosage: 5 MG, QD

REACTIONS (4)
  - Cataract [Unknown]
  - Cystoid macular oedema [Recovered/Resolved]
  - Vision blurred [Recovered/Resolved]
  - Intraocular pressure increased [Unknown]
